FAERS Safety Report 17118703 (Version 2)
Quarter: 2020Q2

REPORT INFORMATION
  Report Type: Report from Study
  Country: None (occurrence: CA)
  Receive Date: 20191206
  Receipt Date: 20200406
  Transmission Date: 20200713
  Serious: Yes (Hospitalization)
  Sender: FDA-Public Use
  Company Number: CA-ABBVIE-19K-028-2658210-00

PATIENT
  Age: 50 Year
  Sex: Female

DRUGS (8)
  1. LEFLUNOMIDE. [Concomitant]
     Active Substance: LEFLUNOMIDE
     Indication: RHEUMATOID ARTHRITIS
     Route: 048
     Dates: end: 201812
  2. HYDROXYCHLOROQUINE [Concomitant]
     Active Substance: HYDROXYCHLOROQUINE
     Indication: PRODUCT USED FOR UNKNOWN INDICATION
  3. HUMIRA [Suspect]
     Active Substance: ADALIMUMAB
     Indication: RHEUMATOID ARTHRITIS
     Route: 058
     Dates: start: 201812, end: 20190116
  4. ALTACE [Concomitant]
     Active Substance: RAMIPRIL
     Indication: PRODUCT USED FOR UNKNOWN INDICATION
  5. PREGABALIN. [Concomitant]
     Active Substance: PREGABALIN
     Indication: PRODUCT USED FOR UNKNOWN INDICATION
  6. HUMIRA [Suspect]
     Active Substance: ADALIMUMAB
     Route: 058
     Dates: start: 2019, end: 20190427
  7. HUMIRA [Suspect]
     Active Substance: ADALIMUMAB
     Route: 058
     Dates: start: 20190601, end: 20190714
  8. METOPROLOL. [Concomitant]
     Active Substance: METOPROLOL
     Indication: PRODUCT USED FOR UNKNOWN INDICATION

REACTIONS (25)
  - Pneumonia [Recovered/Resolved]
  - Musculoskeletal pain [Not Recovered/Not Resolved]
  - White blood cell count increased [Unknown]
  - Gastrointestinal infection [Recovered/Resolved]
  - Dysuria [Unknown]
  - Productive cough [Unknown]
  - Blood lactate dehydrogenase increased [Unknown]
  - Gallbladder enlargement [Unknown]
  - Gastroenteritis [Recovered/Resolved]
  - Reticulocyte count increased [Unknown]
  - Cystitis [Unknown]
  - Lymphocyte count increased [Unknown]
  - Pain in extremity [Not Recovered/Not Resolved]
  - Blood test abnormal [Unknown]
  - Diarrhoea [Recovering/Resolving]
  - Scar [Unknown]
  - Chronic lymphocytic leukaemia [Unknown]
  - International normalised ratio increased [Unknown]
  - Renal atrophy [Unknown]
  - Inflammation [Unknown]
  - Diarrhoea [Unknown]
  - Urinary tract infection [Recovered/Resolved]
  - Haptoglobin increased [Unknown]
  - Vomiting [Recovering/Resolving]
  - Musculoskeletal stiffness [Not Recovered/Not Resolved]

NARRATIVE: CASE EVENT DATE: 2019
